FAERS Safety Report 10633447 (Version 2)
Quarter: 2014Q4

REPORT INFORMATION
  Report Type: Spontaneous
  Country: US (occurrence: None)
  Receive Date: 20141203
  Receipt Date: 20141229
  Transmission Date: 20150529
  Serious: Yes (Death, Other)
  Sender: FDA-Public Use
  Company Number: 2014-20861

PATIENT
  Age: 78 Year
  Sex: Male

DRUGS (10)
  1. LOVASTATIN. [Concomitant]
     Active Substance: LOVASTATIN
  2. DOCUSATE (DOCUSATE) [Concomitant]
     Active Substance: DOCUSATE
  3. ASPIRIN. [Concomitant]
     Active Substance: ASPIRIN
  4. MVI /01825701/ (ASCORBIC ACID, DEXPANTHENOL, ERGOCALCIFEROL, NICOTINAMIDE, PYRIDOXINE, HYDROCHLORIDE, RETINOL, RIBOFLAVIN, THIAMINE HYDROCHLORIDE, TOCOPHERYL ACETATE)? [Concomitant]
  5. VITAMIN B (VITAMIN B COMPLEX) [Concomitant]
  6. THYROID THERAPY [Concomitant]
     Active Substance: UNSPECIFIED INGREDIENT
  7. LOSARTAN [Concomitant]
     Active Substance: LOSARTAN
  8. IRON [Concomitant]
     Active Substance: IRON
  9. FOLIC ACID. [Concomitant]
     Active Substance: FOLIC ACID
  10. EYLEA [Suspect]
     Active Substance: AFLIBERCEPT
     Indication: NEOVASCULAR AGE-RELATED MACULAR DEGENERATION
     Dosage: 2 MG MILLIGRAM(S), EVERY 4-6 WEEKS, INTRAOCULAR?
     Route: 031
     Dates: start: 20130605, end: 20141028

REACTIONS (2)
  - Death [None]
  - Completed suicide [None]

NARRATIVE: CASE EVENT DATE: 20141029
